FAERS Safety Report 5212977-5 (Version None)
Quarter: 2007Q1

REPORT INFORMATION
  Report Type: 
  Country: None (occurrence: None)
  Receive Date: 20070117
  Receipt Date: 20070108
  Transmission Date: 20070707
  Serious: Yes (Hospitalization)
  Sender: FDA-Public Use
  Company Number: SPV1-2007-00094

PATIENT
  Age: 16 Year
  Sex: Female

DRUGS (6)
  1. ADDERALL 15 [Suspect]
     Indication: ATTENTION DEFICIT/HYPERACTIVITY DISORDER
     Dates: start: 20010101, end: 20050101
  2. DEXTROSTAT [Suspect]
     Dates: start: 20010101, end: 20050101
  3. MUSCLE RELAXANTS() [Suspect]
     Dates: start: 20040101, end: 20040101
  4. LEXAPRO [Suspect]
     Dates: start: 20040101
  5. EFFEXOR /01233801/(VENLAFAXINE) [Concomitant]
  6. ZYPREXA [Concomitant]

REACTIONS (27)
  - ABDOMINAL PAIN UPPER [None]
  - ACCIDENTAL OVERDOSE [None]
  - AFFECT LABILITY [None]
  - AGITATION [None]
  - ALCOHOL USE [None]
  - ANGER [None]
  - CRYING [None]
  - DELUSION [None]
  - DEPRESSED MOOD [None]
  - DIZZINESS [None]
  - DYSGEUSIA [None]
  - ELECTROCARDIOGRAM ABNORMAL [None]
  - INSOMNIA [None]
  - INTENTIONAL SELF-INJURY [None]
  - IRRITABILITY [None]
  - LACERATION [None]
  - LOSS OF CONSCIOUSNESS [None]
  - NAUSEA [None]
  - PANIC ATTACK [None]
  - PARANOIA [None]
  - PARTNER STRESS [None]
  - SELF-INJURIOUS IDEATION [None]
  - SELF-MEDICATION [None]
  - SUBSTANCE ABUSE [None]
  - SUICIDE ATTEMPT [None]
  - THINKING ABNORMAL [None]
  - WEIGHT DECREASED [None]
